FAERS Safety Report 15408881 (Version 1)
Quarter: 2018Q3

REPORT INFORMATION
  Report Type: Spontaneous
  Country: GB (occurrence: GB)
  Receive Date: 20180920
  Receipt Date: 20180920
  Transmission Date: 20181010
  Serious: Yes (Death)
  Sender: FDA-Public Use
  Company Number: GB-TEVA-2018-GB-956622

PATIENT
  Age: 75 Year
  Sex: Female

DRUGS (1)
  1. WARFARIN [Suspect]
     Active Substance: WARFARIN
     Indication: ATRIAL FIBRILLATION
     Route: 048

REACTIONS (6)
  - Pulseless electrical activity [Fatal]
  - Headache [Fatal]
  - Hypertension [Fatal]
  - Confusional state [Fatal]
  - Cardiac arrest [Fatal]
  - Haemorrhage intracranial [Fatal]

NARRATIVE: CASE EVENT DATE: 20180804
